FAERS Safety Report 14514268 (Version 4)
Quarter: 2022Q3

REPORT INFORMATION
  Report Type: Spontaneous
  Country: CA (occurrence: CA)
  Receive Date: 20180209
  Receipt Date: 20220916
  Transmission Date: 20221027
  Serious: Yes (Death, Other)
  Sender: FDA-Public Use
  Company Number: None

PATIENT

DRUGS (17)
  1. ONCASPAR [Suspect]
     Active Substance: PEGASPARGASE
     Indication: Acute lymphocytic leukaemia
     Route: 030
  2. DEXAMETHASONE [Suspect]
     Active Substance: DEXAMETHASONE
     Indication: Acute lymphocytic leukaemia
     Dosage: UNK
     Route: 065
  3. FILGRASTIM [Suspect]
     Active Substance: FILGRASTIM
     Indication: Acute lymphocytic leukaemia
     Dosage: UNK
     Route: 065
  4. PREDNISONE [Suspect]
     Active Substance: PREDNISONE
     Indication: Acute lymphocytic leukaemia
     Dosage: UNK
     Route: 065
  5. ASPARAGINASE [Suspect]
     Active Substance: ASPARAGINASE
     Indication: Acute lymphocytic leukaemia
     Dosage: UNK
     Route: 065
  6. CYTARABINE [Suspect]
     Active Substance: CYTARABINE
     Indication: Acute lymphocytic leukaemia
     Dosage: UNK
     Route: 065
  7. DAUNORUBICIN HYDROCHLORIDE [Suspect]
     Active Substance: DAUNORUBICIN HYDROCHLORIDE
     Indication: Acute lymphocytic leukaemia
     Dosage: UNK
     Route: 042
  8. ETOPOSIDE [Suspect]
     Active Substance: ETOPOSIDE
     Indication: Acute lymphocytic leukaemia
     Route: 042
  9. HYDROCORTISONE [Suspect]
     Active Substance: HYDROCORTISONE
     Indication: Acute lymphocytic leukaemia
     Dosage: UNK
     Route: 037
  10. LEUCOVORIN [Suspect]
     Active Substance: LEUCOVORIN
     Indication: Acute lymphocytic leukaemia
     Dosage: UNK
     Route: 042
  11. MERCAPTOPURINE [Suspect]
     Active Substance: MERCAPTOPURINE
     Indication: Acute lymphocytic leukaemia
     Route: 048
  12. METHYLPREDNISOLONE [Suspect]
     Active Substance: METHYLPREDNISOLONE
     Indication: Acute lymphocytic leukaemia
     Route: 042
  13. METHOTREXATE [Suspect]
     Active Substance: METHOTREXATE
     Indication: Acute lymphocytic leukaemia
     Route: 065
  14. CYCLOPHOSPHAMIDE [Suspect]
     Active Substance: CYCLOPHOSPHAMIDE
     Indication: Acute lymphocytic leukaemia
     Dosage: UNK
     Route: 042
  15. VINCRISTINE SULFATE [Suspect]
     Active Substance: VINCRISTINE SULFATE
     Indication: Acute lymphocytic leukaemia
     Route: 042
  16. CYCLOSPORINE [Suspect]
     Active Substance: CYCLOSPORINE
     Indication: Acute lymphocytic leukaemia
     Dosage: UNK
     Route: 065
  17. MESNA [Suspect]
     Active Substance: MESNA
     Indication: Acute lymphocytic leukaemia
     Dosage: UNK
     Route: 065

REACTIONS (14)
  - Cytomegalovirus chorioretinitis [Fatal]
  - Mycobacterium chelonae infection [Fatal]
  - Oesophageal candidiasis [Fatal]
  - Parainfluenzae virus infection [Fatal]
  - Secondary immunodeficiency [Fatal]
  - Coronavirus infection [Fatal]
  - Abscess bacterial [Fatal]
  - Diffuse alveolar damage [Fatal]
  - Incorrect route of product administration [Recovered/Resolved]
  - Bacterial infection [Fatal]
  - Bronchopulmonary aspergillosis [Fatal]
  - Death [Fatal]
  - Pseudomonal sepsis [Fatal]
  - Viral infection [Fatal]

NARRATIVE: CASE EVENT DATE: 20170101
